FAERS Safety Report 12984190 (Version 4)
Quarter: 2018Q1

REPORT INFORMATION
  Report Type: Spontaneous
  Country: US (occurrence: US)
  Receive Date: 20161129
  Receipt Date: 20180309
  Transmission Date: 20180508
  Serious: Yes (Hospitalization, Disabling, Other)
  Sender: FDA-Public Use
  Company Number: US-ENDO PHARMACEUTICALS INC.-2016-004905

PATIENT
  Age: 68 Year
  Sex: Male
  Weight: 113.38 kg

DRUGS (7)
  1. FLUOXETINE [Concomitant]
     Active Substance: FLUOXETINE HYDROCHLORIDE
     Indication: POST-TRAUMATIC STRESS DISORDER
     Dosage: UNK UNKNOWN, UNKNOWN
     Route: 065
     Dates: start: 2008
  2. LITHIUM. [Concomitant]
     Active Substance: LITHIUM
     Indication: POST-TRAUMATIC STRESS DISORDER
     Dosage: UNK UNKNOWN, UNKNOWN
     Route: 065
  3. CITRICAL [Concomitant]
     Active Substance: CALCIUM CITRATE
     Indication: DIVERTICULITIS
     Dosage: UNK UNKNOWN, UNKNOWN
     Route: 065
  4. TESTIM [Suspect]
     Active Substance: TESTOSTERONE
     Indication: ANDROGEN REPLACEMENT THERAPY
     Dosage: 50 MG, DAILY
     Route: 062
     Dates: start: 20130614, end: 20130805
  5. RANITIDINE. [Concomitant]
     Active Substance: RANITIDINE
     Indication: HIATUS HERNIA
     Dosage: UNK UNKNOWN, UNKNOWN
     Route: 065
     Dates: start: 2008
  6. ANDROGEL [Suspect]
     Active Substance: TESTOSTERONE
     Indication: ANDROGEN REPLACEMENT THERAPY
     Dosage: UNK UNKNOWN, TID
     Route: 065
     Dates: start: 20130423, end: 20130623
  7. TESTIM [Suspect]
     Active Substance: TESTOSTERONE
     Dosage: 50 MG, DAILY
     Route: 062
     Dates: start: 20090608, end: 20120428

REACTIONS (7)
  - Pain [Not Recovered/Not Resolved]
  - Quality of life decreased [Not Recovered/Not Resolved]
  - Mood swings [Not Recovered/Not Resolved]
  - Emotional distress [Not Recovered/Not Resolved]
  - Myocardial strain [Not Recovered/Not Resolved]
  - Pulmonary embolism [Not Recovered/Not Resolved]
  - General physical health deterioration [Not Recovered/Not Resolved]

NARRATIVE: CASE EVENT DATE: 20130805
